FAERS Safety Report 18596231 (Version 6)
Quarter: 2021Q2

REPORT INFORMATION
  Report Type: Spontaneous
  Country: US (occurrence: US)
  Receive Date: 20201209
  Receipt Date: 20210609
  Transmission Date: 20210717
  Serious: No
  Sender: FDA-Public Use
  Company Number: US-PFIZER INC-2020484368

PATIENT
  Age: 50 Year
  Sex: Female

DRUGS (2)
  1. XELJANZ XR [Suspect]
     Active Substance: TOFACITINIB CITRATE
     Dosage: 11 MG
     Dates: start: 20200701, end: 202102
  2. XELJANZ XR [Suspect]
     Active Substance: TOFACITINIB CITRATE
     Dosage: 11 MG
     Dates: start: 20200601, end: 2020

REACTIONS (5)
  - Stomatitis [Unknown]
  - Inflammatory marker increased [Unknown]
  - Drug ineffective [Unknown]
  - Acne [Unknown]
  - Skin lesion [Unknown]

NARRATIVE: CASE EVENT DATE: 2020
